FAERS Safety Report 9016768 (Version 1)
Quarter: 2013Q1

REPORT INFORMATION
  Report Type: Spontaneous
  Country: FR (occurrence: FR)
  Receive Date: 20130116
  Receipt Date: 20130116
  Transmission Date: 20140127
  Serious: Yes (Other)
  Sender: FDA-Public Use
  Company Number: FR-BAYER-2013-003534

PATIENT
  Age: 72 Year
  Sex: Male

DRUGS (11)
  1. NEXAVAR [Suspect]
     Indication: HEPATOCELLULAR CARCINOMA
     Dosage: 400 MG, BID
     Route: 048
     Dates: start: 20120703, end: 20120912
  2. PRADAXA [Suspect]
     Indication: ATRIAL FIBRILLATION
     Dosage: 110 DF, BID
     Route: 048
     Dates: start: 20120413, end: 20120912
  3. LASILIX [Concomitant]
     Dosage: DAILY DOSE 20 MG
  4. NOVONORM [Concomitant]
     Dosage: 2 MG, BID
  5. TRIATEC [Concomitant]
     Dosage: 5 MG, QD
  6. CRESTOR [Concomitant]
     Dosage: UNK
  7. TENORMINE [Concomitant]
     Dosage: 50 MG, QD
  8. AMLODIPINE BESILATE W/ OLMESARTAN MEDOXOMIL [Concomitant]
     Dosage: 1 DF, QD
  9. PERMIXON [Concomitant]
     Dosage: 160 MG, BID
  10. INIPOMP [Concomitant]
     Dosage: 20 MG, QD
  11. ATARAX [Concomitant]
     Dosage: 25 MG, HS

REACTIONS (2)
  - Hepatitis cholestatic [Recovering/Resolving]
  - Blood bilirubin increased [Recovering/Resolving]
